FAERS Safety Report 4348828-0 (Version None)
Quarter: 2004Q1

REPORT INFORMATION
  Report Type: 
  Country: None (occurrence: None)
  Receive Date: 20040325
  Receipt Date: 20040213
  Transmission Date: 20041129
  Serious: No
  Sender: FDA-Public Use
  Company Number: USA040258489

PATIENT
  Age: 77 Year
  Sex: Female

DRUGS (9)
  1. FORTEO [Suspect]
     Indication: OSTEOPOROSIS
     Dates: start: 20040202
  2. ALBUTEROL [Concomitant]
  3. FLOVENT [Concomitant]
  4. THEOPHYLLINE [Concomitant]
  5. SYNTHROID (LEVTHYROXINE SODIUM) [Concomitant]
  6. PREMARIN [Concomitant]
  7. RHINOCORT [Concomitant]
  8. PREDNISONE [Concomitant]
  9. SEREVENT [Concomitant]

REACTIONS (6)
  - ANOREXIA [None]
  - DIZZINESS [None]
  - FEAR [None]
  - FEELING ABNORMAL [None]
  - MUSCLE CRAMP [None]
  - NAUSEA [None]
